FAERS Safety Report 25952986 (Version 2)
Quarter: 2025Q4

REPORT INFORMATION
  Report Type: Spontaneous
  Country: EU (occurrence: EU)
  Receive Date: 20251023
  Receipt Date: 20251105
  Transmission Date: 20260118
  Serious: Yes (Death, Life-Threatening, Hospitalization)
  Sender: MERCK SHARP & DOHME LLC
  Company Number: EU-009507513-2341677

PATIENT
  Age: 65 Year
  Sex: Female
  Weight: 110 kg

DRUGS (9)
  1. WINREVAIR [Suspect]
     Active Substance: SOTATERCEPT-CSRK
     Indication: Pulmonary arterial hypertension
     Route: 058
     Dates: start: 20250227
  2. WINREVAIR [Suspect]
     Active Substance: SOTATERCEPT-CSRK
  3. WINREVAIR [Suspect]
     Active Substance: SOTATERCEPT-CSRK
  4. WINREVAIR [Suspect]
     Active Substance: SOTATERCEPT-CSRK
  5. FUROSEMIDE [Concomitant]
     Active Substance: FUROSEMIDE
     Indication: Cardiac failure
     Dates: start: 2020, end: 20251006
  6. FLUINDIONE [Concomitant]
     Active Substance: FLUINDIONE
     Indication: Deep vein thrombosis
     Dates: start: 2004, end: 20251006
  7. AMIODARONE [Concomitant]
     Active Substance: AMIODARONE
     Indication: Atrial fibrillation
     Dates: start: 2020, end: 20251006
  8. SILDENAFIL [Concomitant]
     Active Substance: SILDENAFIL
     Indication: Pulmonary arterial hypertension
     Dates: start: 2016, end: 20251006
  9. AMBRISENTAN [Concomitant]
     Active Substance: AMBRISENTAN
     Indication: Pulmonary arterial hypertension
     Dates: start: 2016, end: 20251006

REACTIONS (4)
  - Cardiac arrest [Fatal]
  - Muscle haemorrhage [Unknown]
  - Hypotension [Unknown]
  - Traumatic haematoma [Recovered/Resolved]

NARRATIVE: CASE EVENT DATE: 20250101
